FAERS Safety Report 5780234-4 (Version None)
Quarter: 2008Q2

REPORT INFORMATION
  Report Type: 
  Country: None (occurrence: None)
  Receive Date: 20080620
  Receipt Date: 20080609
  Transmission Date: 20081010
  Serious: Yes (Hospitalization)
  Sender: FDA-Public Use
  Company Number: PHHY2008FR10621

PATIENT
  Sex: Female

DRUGS (16)
  1. VOLTAREN [Interacting]
     Indication: BACK PAIN
     Dosage: UNK
     Dates: start: 20080319, end: 20080401
  2. PREVISCAN [Interacting]
     Indication: ATRIAL FIBRILLATION
     Dosage: 10 MG
     Dates: end: 20080401
  3. TOPALGIC [Suspect]
     Indication: BACK PAIN
     Dosage: 50 MG
     Dates: start: 20080319, end: 20080401
  4. DAFALGAN [Concomitant]
     Dosage: FOR SEVERAL YEARS
  5. ACETAMINOPHEN W/ CODEINE [Concomitant]
     Dosage: UNK
  6. QUINAPRIL HCL AND HYDROCHLOROTHIAZIDE [Concomitant]
     Dosage: UNK
  7. AMLODIPINE [Concomitant]
     Dosage: UNK
  8. LEVOTHYROXINE SODIUM [Concomitant]
     Dosage: UNK
  9. OMEPRAZOLE [Concomitant]
     Dosage: UNK
  10. TERCIAN [Concomitant]
  11. GLICLAZIDE [Concomitant]
     Dosage: 80 MG, BID
  12. STILNOX [Concomitant]
     Dosage: 10 MG
  13. TETRAZEPAM [Concomitant]
     Dosage: UNK
     Dates: start: 20080319
  14. CORTANCYL [Concomitant]
     Dosage: 60 MG
     Dates: start: 20080310, end: 20080313
  15. CORTANCYL [Concomitant]
     Dosage: 40 MG
     Dates: start: 20080314
  16. MIOREL [Concomitant]
     Dosage: UNK
     Dates: start: 20080310

REACTIONS (6)
  - ANAEMIA [None]
  - ASTHENIA [None]
  - DYSPNOEA [None]
  - HAEMOGLOBIN DECREASED [None]
  - INTERNATIONAL NORMALISED RATIO INCREASED [None]
  - MELAENA [None]
